APPROVED DRUG PRODUCT: IBUPROFEN
Active Ingredient: IBUPROFEN
Strength: EQ 200MG FREE ACID AND POTASSIUM SALT
Dosage Form/Route: CAPSULE;ORAL
Application: A206999 | Product #001
Applicant: ASCENT PHARMACEUTICALS INC
Approved: Dec 21, 2017 | RLD: No | RS: No | Type: OTC